FAERS Safety Report 23466567 (Version 1)
Quarter: 2024Q1

REPORT INFORMATION
  Report Type: Spontaneous
  Country: US (occurrence: None)
  Receive Date: 20240131
  Receipt Date: 20240131
  Transmission Date: 20240410
  Serious: Yes (Life-Threatening, Disabling)
  Sender: FDA-Public Use
  Company Number: None

PATIENT
  Age: 83 Year
  Sex: Male
  Weight: 79.38 kg

DRUGS (8)
  1. FINASTERIDE [Suspect]
     Active Substance: FINASTERIDE
     Indication: Benign neoplasm of prostate
     Dates: start: 20070801, end: 20231214
  2. ATORVASTATIN [Concomitant]
     Active Substance: ATORVASTATIN
  3. TAMSULOSIN [Concomitant]
     Active Substance: TAMSULOSIN
  4. PREDNISONE [Concomitant]
     Active Substance: PREDNISONE
  5. Adiraterone [Concomitant]
  6. LUPRON [Concomitant]
     Active Substance: LEUPROLIDE ACETATE
  7. MINERALS\VITAMINS [Concomitant]
     Active Substance: MINERALS\VITAMINS
  8. PEPCID [Concomitant]
     Active Substance: FAMOTIDINE

REACTIONS (2)
  - Prostatic specific antigen increased [None]
  - Product communication issue [None]

NARRATIVE: CASE EVENT DATE: 20230810
